FAERS Safety Report 5953011-9 (Version None)
Quarter: 2008Q4

REPORT INFORMATION
  Report Type: 
  Country: None (occurrence: None)
  Receive Date: 20081114
  Receipt Date: 20080730
  Transmission Date: 20090506
  Serious: No
  Sender: FDA-Public Use
  Company Number: US-BRISTOL-MYERS SQUIBB COMPANY-14282677

PATIENT
  Age: 70 Year
  Sex: Female

DRUGS (6)
  1. IXEMPRA KIT [Suspect]
     Indication: BREAST CANCER METASTATIC
  2. PREDNISONE [Suspect]
  3. CAPECITABINE [Suspect]
  4. DEXAMETHASONE 0.5MG TAB [Concomitant]
     Indication: PREMEDICATION
  5. BENADRYL [Concomitant]
     Indication: PREMEDICATION
  6. TAGAMET [Concomitant]
     Indication: PREMEDICATION

REACTIONS (3)
  - CONSTIPATION [None]
  - FULL BLOOD COUNT DECREASED [None]
  - NAUSEA [None]
